FAERS Safety Report 21980027 (Version 3)
Quarter: 2023Q1

REPORT INFORMATION
  Report Type: Report from Study
  Country: AU (occurrence: AU)
  Receive Date: 20230210
  Receipt Date: 20230307
  Transmission Date: 20230418
  Serious: Yes (Life-Threatening, Hospitalization)
  Sender: FDA-Public Use
  Company Number: AU-GILEAD-2023-0615706

PATIENT
  Sex: Male
  Weight: 85.6 kg

DRUGS (21)
  1. SACITUZUMAB GOVITECAN-HZIY [Suspect]
     Active Substance: SACITUZUMAB GOVITECAN-HZIY
     Indication: Neoplasm
     Dosage: 862 MG D1/D8; DATE OF LAST DOSE PRIOR TO EVENT 31-JAN-2023
     Route: 042
     Dates: start: 20230124, end: 20230131
  2. NICORANDIL [Concomitant]
     Active Substance: NICORANDIL
     Indication: Myocardial ischaemia
     Dosage: UNK
     Dates: start: 2016
  3. SOTALOL [Concomitant]
     Active Substance: SOTALOL
     Indication: Myocardial ischaemia
     Dosage: UNK
     Dates: start: 200208
  4. ELIQUIS [Concomitant]
     Active Substance: APIXABAN
     Indication: Myocardial ischaemia
     Dosage: UNK
     Dates: start: 200208
  5. CLOPIDOGREL [Concomitant]
     Active Substance: CLOPIDOGREL BISULFATE
     Indication: Myocardial ischaemia
     Dosage: UNK
     Dates: start: 2005
  6. CRESTOR [Concomitant]
     Active Substance: ROSUVASTATIN CALCIUM
     Indication: Hyperlipidaemia
     Dosage: UNK
     Dates: start: 2009
  7. DICLOFENAC DIETHYLAMINE [Concomitant]
     Active Substance: DICLOFENAC DIETHYLAMINE
     Indication: Osteoarthritis
     Dosage: UNK
     Dates: start: 202209
  8. PANADOL [Concomitant]
     Active Substance: ACETAMINOPHEN
     Indication: Osteoarthritis
     Dosage: UNK
     Dates: start: 202209
  9. NETUPITANT [Concomitant]
     Active Substance: NETUPITANT
     Indication: Antiemetic supportive care
     Dosage: UNK
     Dates: start: 20230124
  10. NETUPITANT [Concomitant]
     Active Substance: NETUPITANT
     Dosage: UNK
     Dates: start: 20230131, end: 20230131
  11. PALONOSETRON [Concomitant]
     Active Substance: PALONOSETRON
     Indication: Antiemetic supportive care
     Dosage: UNK
     Dates: start: 20230124, end: 20230124
  12. ACETAMINOPHEN [Concomitant]
     Active Substance: ACETAMINOPHEN
     Indication: Pyrexia
     Dosage: UNK
     Dates: start: 20230124, end: 20230124
  13. ACETAMINOPHEN [Concomitant]
     Active Substance: ACETAMINOPHEN
     Dosage: UNK
     Dates: start: 20230131, end: 20230131
  14. LORATADINE [Concomitant]
     Active Substance: LORATADINE
     Indication: Antiallergic therapy
     Dosage: UNK
     Dates: start: 20230124, end: 20230124
  15. LORATADINE [Concomitant]
     Active Substance: LORATADINE
     Dosage: UNK
     Dates: start: 20230131, end: 20230131
  16. FAMOTIDINE [Concomitant]
     Active Substance: FAMOTIDINE
     Indication: Antiallergic therapy
     Dosage: UNK
     Dates: start: 20230124, end: 20230124
  17. FAMOTIDINE [Concomitant]
     Active Substance: FAMOTIDINE
     Dosage: UNK
     Dates: start: 20230131, end: 20230131
  18. DEXAMETHASONE [Concomitant]
     Active Substance: DEXAMETHASONE
     Indication: Antiemetic supportive care
     Dosage: UNK
     Dates: start: 20230125, end: 20230125
  19. DEXAMETHASONE [Concomitant]
     Active Substance: DEXAMETHASONE
     Dosage: UNK
     Dates: start: 20230201, end: 20230203
  20. LOPERAMIDE [Concomitant]
     Active Substance: LOPERAMIDE
     Indication: Antidiarrhoeal supportive care
     Dosage: UNK
     Dates: start: 20230124
  21. METOCLOPRAMIDE [Concomitant]
     Active Substance: METOCLOPRAMIDE
     Indication: Antiemetic supportive care
     Dosage: UNK
     Dates: start: 20230124

REACTIONS (3)
  - Neutropenic sepsis [Recovered/Resolved]
  - Febrile neutropenia [Recovered/Resolved]
  - Dysphagia [Recovered/Resolved]

NARRATIVE: CASE EVENT DATE: 20230206
